FAERS Safety Report 4955007-2 (Version None)
Quarter: 2006Q1

REPORT INFORMATION
  Report Type: 
  Country: None (occurrence: None)
  Receive Date: 20060322
  Receipt Date: 20060307
  Transmission Date: 20060701
  Serious: Yes (Other)
  Sender: FDA-Public Use
  Company Number: 200611053BWH

PATIENT
  Age: 78 Year
  Sex: Male

DRUGS (4)
  1. LEVITRA [Suspect]
     Indication: ERECTILE DYSFUNCTION
     Dosage: 10 MG, Q2WK, ORAL
     Route: 048
     Dates: start: 20051101
  2. AVANDARYL [Concomitant]
  3. PREDNISONE [Concomitant]
  4. PRESERVISION EYE VITAMIN AND MINERAL SUPPLEMENT [Concomitant]

REACTIONS (2)
  - EYE HAEMORRHAGE [None]
  - OPTIC NERVE DISORDER [None]
